FAERS Safety Report 16477074 (Version 1)
Quarter: 2019Q2

REPORT INFORMATION
  Report Type: Spontaneous
  Country: GB (occurrence: GB)
  Receive Date: 20190626
  Receipt Date: 20190626
  Transmission Date: 20190711
  Serious: Yes (Death, Other)
  Sender: FDA-Public Use
  Company Number: GB-AUROBINDO-AUR-APL-2019-036031

PATIENT

DRUGS (2)
  1. VORICONAZOLE. [Suspect]
     Active Substance: VORICONAZOLE
     Indication: PRODUCT USED FOR UNKNOWN INDICATION
     Dosage: UNK, DOSAGE FORM: UNSPECIFIED
     Route: 065
  2. DARATUMUMAB [Suspect]
     Active Substance: DARATUMUMAB
     Indication: T-CELL TYPE ACUTE LEUKAEMIA
     Dosage: 2080 MILLIGRAM, EVERY WEEK
     Route: 042
     Dates: start: 20190117

REACTIONS (13)
  - Infusion related reaction [Fatal]
  - Nausea [Fatal]
  - Dyspnoea [Fatal]
  - Fluid overload [Fatal]
  - Urticaria [Fatal]
  - Product use in unapproved indication [Fatal]
  - Rash [Fatal]
  - Weight decreased [Fatal]
  - Pyrexia [Fatal]
  - Neutropenic sepsis [Fatal]
  - Off label use [Fatal]
  - Disease progression [Fatal]
  - Diarrhoea [Fatal]

NARRATIVE: CASE EVENT DATE: 2019
